FAERS Safety Report 7132231-4 (Version None)
Quarter: 2010Q4

REPORT INFORMATION
  Report Type: 
  Country: None (occurrence: None)
  Receive Date: 20101202
  Receipt Date: 20101122
  Transmission Date: 20110411
  Serious: Yes (Other)
  Sender: FDA-Public Use
  Company Number: US-SHIRE-SPV1-2010-02018

PATIENT
  Sex: Male
  Weight: 53.061 kg

DRUGS (2)
  1. 489 (LISDEXAMFETAMINE DIMESYLATE) [Suspect]
     Indication: INVESTIGATION
     Dosage: 30 MG, 1X/DAY:QD
     Route: 048
     Dates: start: 20101116, end: 20101119
  2. EFFEXOR XR [Suspect]
     Dosage: UNK

REACTIONS (2)
  - CONVULSION [None]
  - SYNCOPE [None]
